FAERS Safety Report 8745731 (Version 2)
Quarter: 2013Q1

REPORT INFORMATION
  Report Type: Spontaneous
  Country: US (occurrence: US)
  Receive Date: 20120827
  Receipt Date: 20130108
  Transmission Date: 20140127
  Serious: Yes (Other)
  Sender: FDA-Public Use
  Company Number: US-BIOGENIDEC-2012BI032161

PATIENT
  Sex: Female

DRUGS (4)
  1. TYSABRI [Suspect]
     Indication: MULTIPLE SCLEROSIS
     Route: 042
     Dates: start: 20080117, end: 20120523
  2. AVONEX [Concomitant]
     Indication: MULTIPLE SCLEROSIS
     Route: 030
     Dates: start: 19990101
  3. VITAMIN D SUPPLEMENT [Concomitant]
  4. B COMPLEX SUPPLEMENT [Concomitant]

REACTIONS (4)
  - Basal cell carcinoma [Recovered/Resolved]
  - Vitamin D decreased [Unknown]
  - Fatigue [Unknown]
  - Drug ineffective [Unknown]
